FAERS Safety Report 12761823 (Version 1)
Quarter: 2016Q3

REPORT INFORMATION
  Report Type: Spontaneous
  Country: CH (occurrence: CH)
  Receive Date: 20160920
  Receipt Date: 20160920
  Transmission Date: 20161109
  Serious: Yes (Death, Other)
  Sender: FDA-Public Use
  Company Number: CH-ALKEM LABORATORIES LIMITED-CH-ALKEM-2016-00185

PATIENT
  Age: 32 Month
  Sex: Male
  Weight: 10 kg

DRUGS (1)
  1. METHADONE HYDROCHLORIDE. [Suspect]
     Active Substance: METHADONE HYDROCHLORIDE
     Indication: SEDATION
     Dosage: UNKNOWN

REACTIONS (7)
  - Pyrexia [Unknown]
  - Dyspnoea [Unknown]
  - Toxicity to various agents [Fatal]
  - Restlessness [Unknown]
  - Vomiting [Unknown]
  - Cardio-respiratory arrest [Unknown]
  - Insomnia [Unknown]
